FAERS Safety Report 6728625-9 (Version None)
Quarter: 2010Q2

REPORT INFORMATION
  Report Type: 
  Country: None (occurrence: None)
  Receive Date: 20100517
  Receipt Date: 20100505
  Transmission Date: 20101027
  Serious: Yes (Other)
  Sender: FDA-Public Use
  Company Number: CH-ELI_LILLY_AND_COMPANY-CH201004007499

PATIENT
  Age: 44 Year
  Sex: Female

DRUGS (10)
  1. ZYPREXA [Suspect]
     Dosage: 30 MG, DAILY (1/D)
     Route: 048
     Dates: start: 20090928, end: 20091019
  2. ZYPREXA [Suspect]
     Dosage: 25 MG, DAILY (1/D)
     Route: 048
     Dates: start: 20091020, end: 20091020
  3. ZYPREXA [Suspect]
     Dosage: 20 MG, DAILY (1/D)
     Route: 048
     Dates: start: 20091021, end: 20100114
  4. ZYPREXA [Suspect]
     Dosage: 20 MG, DAILY (1/D)
     Route: 048
     Dates: start: 20100115, end: 20100204
  5. ZYPREXA [Suspect]
     Dosage: 15 MG, DAILY (1/D)
     Route: 048
     Dates: start: 20100205, end: 20100218
  6. ZYPREXA [Suspect]
     Dosage: 10 MG, DAILY (1/D)
     Route: 048
     Dates: start: 20100219, end: 20100221
  7. ZYPREXA [Suspect]
     Dosage: 5 MG, DAILY (1/D)
     Route: 048
     Dates: start: 20100222, end: 20100223
  8. DAFALGAN [Concomitant]
     Indication: ANALGESIC THERAPY
     Dosage: 2000 MG, DAILY (1/D)
     Route: 048
     Dates: start: 20090928, end: 20091005
  9. NOVALGIN /06276704/ [Concomitant]
     Indication: ANALGESIC THERAPY
     Dosage: 4000 MG, DAILY (1/D)
     Route: 048
     Dates: start: 20090928, end: 20091005
  10. CLOZAPINE [Concomitant]
     Dates: start: 20100218

REACTIONS (9)
  - ACTIVATION SYNDROME [None]
  - AKATHISIA [None]
  - INITIAL INSOMNIA [None]
  - MOVEMENT DISORDER [None]
  - MUSCLE TWITCHING [None]
  - OVERDOSE [None]
  - PARAESTHESIA [None]
  - RESTLESS LEGS SYNDROME [None]
  - RESTLESSNESS [None]
